FAERS Safety Report 9173875 (Version 1)
Quarter: 2013Q1

REPORT INFORMATION
  Report Type: Spontaneous
  Country: CO (occurrence: CO)
  Receive Date: 20130320
  Receipt Date: 20130320
  Transmission Date: 20140127
  Serious: Yes (Hospitalization)
  Sender: FDA-Public Use
  Company Number: CO-UCBSA-080962

PATIENT
  Age: 53 Year
  Sex: Female

DRUGS (5)
  1. CIMZIA [Suspect]
     Indication: RHEUMATOID ARTHRITIS
     Route: 058
     Dates: start: 20121203, end: 20130215
  2. SULPHASALAZINE [Concomitant]
     Dosage: 500 MG
  3. CALCIUM [Concomitant]
     Dosage: 500 MG
  4. FLUOXETINE [Concomitant]
     Dosage: 20 MG
  5. PREDNISOLONE [Concomitant]
     Dosage: 7.5 MG

REACTIONS (1)
  - Herpes zoster [Not Recovered/Not Resolved]
